FAERS Safety Report 8588169-9 (Version None)
Quarter: 2012Q3

REPORT INFORMATION
  Report Type: 
  Country: None (occurrence: None)
  Receive Date: 20120731
  Receipt Date: 20120720
  Transmission Date: 20120928
  Serious: Yes (Hospitalization, Other)
  Sender: FDA-Public Use
  Company Number: ADR-2012-00905

PATIENT
  Sex: Female

DRUGS (2)
  1. BACLOFEN [Suspect]
     Indication: CEREBRAL PALSY
     Dosage: 50MCG/DAY
  2. BACLOFEN [Suspect]
     Indication: MUSCLE SPASTICITY
     Dosage: 50MCG/DAY

REACTIONS (12)
  - ABDOMINAL PAIN [None]
  - INTRACRANIAL HYPOTENSION [None]
  - IMPLANT SITE SWELLING [None]
  - MUSCULOSKELETAL STIFFNESS [None]
  - PYREXIA [None]
  - NECK PAIN [None]
  - C-REACTIVE PROTEIN INCREASED [None]
  - MENINGITIS BACTERIAL [None]
  - CITROBACTER TEST POSITIVE [None]
  - IMPLANT SITE INFECTION [None]
  - INJURY [None]
  - IMPLANT SITE EFFUSION [None]
